FAERS Safety Report 6002000-7 (Version None)
Quarter: 2008Q4

REPORT INFORMATION
  Report Type: 
  Country: None (occurrence: None)
  Receive Date: 20081215
  Receipt Date: 20081204
  Transmission Date: 20090506
  Serious: Yes (Other)
  Sender: FDA-Public Use
  Company Number: AU-AMGEN-US323172

PATIENT
  Age: 61 Year
  Sex: Male

DRUGS (8)
  1. ENBREL [Suspect]
     Indication: DRUG USE FOR UNKNOWN INDICATION
     Route: 058
  2. ALLOPURINOL [Concomitant]
  3. WARFARIN SODIUM [Concomitant]
  4. ATORVASTATIN [Concomitant]
  5. TRANDOLAPRIL [Concomitant]
  6. ATENOLOL [Concomitant]
  7. CYCLOSPORINE [Concomitant]
  8. FUROSEMIDE [Concomitant]

REACTIONS (3)
  - DYSPNOEA [None]
  - URINARY RETENTION [None]
  - VASCULITIS [None]
